FAERS Safety Report 21194412 (Version 1)
Quarter: 2022Q3

REPORT INFORMATION
  Report Type: Spontaneous
  Country: US (occurrence: US)
  Receive Date: 20220810
  Receipt Date: 20220810
  Transmission Date: 20221027
  Serious: Yes (Hospitalization)
  Sender: FDA-Public Use
  Company Number: US-STRIDES ARCOLAB LIMITED-2022SP008215

PATIENT
  Age: 37 Year
  Sex: Female

DRUGS (3)
  1. URSODIOL [Suspect]
     Active Substance: URSODIOL
     Indication: Cholestatic liver injury
     Dosage: UNK
     Route: 065
  2. HERBALS\MITRAGYNINE [Concomitant]
     Active Substance: HERBALS\MITRAGYNINE
     Indication: Phytotherapy
     Dosage: UNK (3 CAPSULES PER DAY)
     Route: 048
  3. AMFETAMINE SULFATE;DEXAMFETAMINE [Concomitant]
     Indication: Attention deficit hyperactivity disorder
     Dosage: UNK
     Route: 065

REACTIONS (1)
  - Drug ineffective [Unknown]
